FAERS Safety Report 9163000 (Version 2)
Quarter: 2013Q2

REPORT INFORMATION
  Report Type: Other
  Country: FR (occurrence: FR)
  Receive Date: 20121220
  Receipt Date: 20130628
  Transmission Date: 20140414
  Serious: Yes (Other)
  Sender: FDA-Public Use
  Company Number: FR-RB-047818-12

PATIENT
  Sex: Female

DRUGS (2)
  1. BUPRENORPHINE [Suspect]
     Indication: DRUG DEPENDENCE
     Dosage: STOPPED TAKING IN 12TH WEEK OF PREGNANCY
  2. HEROIN [Suspect]
     Indication: PRODUCT USED FOR UNKNOWN INDICATION
     Dosage: DRUG DETAILS UNKNOWN
     Route: 065

REACTIONS (3)
  - Exposure during pregnancy [Recovered/Resolved]
  - Pre-eclampsia [Recovered/Resolved]
  - Stillbirth [Recovered/Resolved]
